FAERS Safety Report 16985856 (Version 1)
Quarter: 2019Q4

REPORT INFORMATION
  Report Type: Spontaneous
  Country: US (occurrence: US)
  Receive Date: 20190918
  Receipt Date: 20190918
  Transmission Date: 20200122
  Serious: Yes (Hospitalization)
  Sender: FDA-Public Use
  Company Number: None

PATIENT
  Sex: Female

DRUGS (14)
  1. OMEPRAZOLE. [Concomitant]
     Active Substance: OMEPRAZOLE
  2. AZATHIPRINE [Concomitant]
  3. PT CHLORIDE [Concomitant]
  4. PROZAC [Concomitant]
     Active Substance: FLUOXETINE HYDROCHLORIDE
  5. WELLBUTRIN [Concomitant]
     Active Substance: BUPROPION HYDROCHLORIDE
  6. ANASPAZ [Concomitant]
     Active Substance: HYOSCYAMINE SULFATE
  7. ESTROPIPATE. [Concomitant]
     Active Substance: ESTROPIPATE
  8. RITALIN [Concomitant]
     Active Substance: METHYLPHENIDATE HYDROCHLORIDE
  9. ORENCIA [Suspect]
     Active Substance: ABATACEPT
     Indication: RHEUMATOID ARTHRITIS
     Route: 058
     Dates: start: 20160216
  10. ALPRAZOLAM. [Concomitant]
     Active Substance: ALPRAZOLAM
  11. KLOR-CON/EF [Concomitant]
     Active Substance: POTASSIUM BICARBONATE
  12. LATISSE [Concomitant]
     Active Substance: BIMATOPROST
  13. PLAQUENIL [Concomitant]
     Active Substance: HYDROXYCHLOROQUINE SULFATE
  14. ALDACTONE [Concomitant]
     Active Substance: SPIRONOLACTONE

REACTIONS (1)
  - Product dose omission [None]
